FAERS Safety Report 7229856-4 (Version None)
Quarter: 2011Q1

REPORT INFORMATION
  Report Type: 
  Country: None (occurrence: None)
  Receive Date: 20110117
  Receipt Date: 20110105
  Transmission Date: 20110831
  Serious: Yes (Other)
  Sender: FDA-Public Use
  Company Number: PHHY2011IN01158

PATIENT
  Sex: Male

DRUGS (4)
  1. CARBAMAZEPINE [Suspect]
  2. LAMOTRIGINE [Suspect]
     Dosage: 200 MG, QD
  3. CLOZAPINE [Suspect]
     Dosage: 300 MG, QD
  4. VALPROIC ACID [Suspect]
     Dosage: 2 G, QD

REACTIONS (4)
  - THROMBOCYTOPENIA [None]
  - MANIA [None]
  - SWELLING FACE [None]
  - RASH [None]
